FAERS Safety Report 6608776-X (Version None)
Quarter: 2010Q1

REPORT INFORMATION
  Report Type: 
  Country: None (occurrence: None)
  Receive Date: 20100301
  Receipt Date: 20100217
  Transmission Date: 20100710
  Serious: Yes (Death, Hospitalization, Other)
  Sender: FDA-Public Use
  Company Number: GB-GENENTECH-297853

PATIENT
  Sex: Female

DRUGS (6)
  1. LUCENTIS [Suspect]
     Indication: MACULAR DEGENERATION
     Dosage: UNK
     Route: 031
     Dates: start: 20080731
  2. LUCENTIS [Suspect]
     Dosage: UNK
     Route: 031
     Dates: start: 20091001
  3. LUCENTIS [Suspect]
     Dosage: UNK
     Route: 031
     Dates: start: 20091203
  4. AZITHROMYC [Concomitant]
     Indication: DRUG USE FOR UNKNOWN INDICATION
  5. COLOMYCIN [Concomitant]
     Indication: DRUG USE FOR UNKNOWN INDICATION
  6. VORICONAZOLE [Concomitant]
     Indication: DRUG USE FOR UNKNOWN INDICATION

REACTIONS (3)
  - BRONCHOPNEUMONIA [None]
  - CHRONIC OBSTRUCTIVE PULMONARY DISEASE [None]
  - MACULAR DEGENERATION [None]
